FAERS Safety Report 10494994 (Version 1)
Quarter: 2014Q4

REPORT INFORMATION
  Report Type: Spontaneous
  Country: DE (occurrence: DE)
  Receive Date: 20141003
  Receipt Date: 20141003
  Transmission Date: 20150528
  Serious: Yes (Other)
  Sender: FDA-Public Use
  Company Number: DE-WATSON-2014-21314

PATIENT
  Age: 6 Year
  Sex: Male

DRUGS (12)
  1. PEG/L-ASPARAGINASE [Suspect]
     Active Substance: PEGASPARGASE
     Dosage: UNK
     Route: 065
  2. VINCRISTINE (UNKNOWN) [Suspect]
     Active Substance: VINCRISTINE
     Dosage: UNK
     Route: 065
  3. IDARUBICIN [Suspect]
     Active Substance: IDARUBICIN
     Indication: ACUTE LYMPHOCYTIC LEUKAEMIA
     Dosage: 6 MG/M2, CYCLICAL
     Route: 065
     Dates: start: 201303
  4. DEXAMETHASONE (UNKNOWN) [Suspect]
     Active Substance: DEXAMETHASONE
     Dosage: 6 MG/M2, CYCLICAL
     Route: 065
     Dates: start: 201303
  5. PEG/L-ASPARAGINASE [Suspect]
     Active Substance: PEGASPARGASE
     Indication: ACUTE LYMPHOCYTIC LEUKAEMIA
     Dosage: UNK
     Route: 065
     Dates: start: 201301
  6. CYTARABINE. [Suspect]
     Active Substance: CYTARABINE
     Indication: ACUTE LYMPHOCYTIC LEUKAEMIA
     Dosage: UNK
     Route: 065
  7. DEXAMETHASONE (UNKNOWN) [Suspect]
     Active Substance: DEXAMETHASONE
     Indication: ACUTE LYMPHOCYTIC LEUKAEMIA
     Dosage: UNK
     Route: 065
     Dates: start: 201301
  8. METHOTREXATE (METHOTREXATE SODIUM) [Suspect]
     Active Substance: METHOTREXATE SODIUM
     Indication: ACUTE LYMPHOCYTIC LEUKAEMIA
     Dosage: UNK
     Route: 065
     Dates: start: 201301
  9. PEG/L-ASPARAGINASE [Suspect]
     Active Substance: PEGASPARGASE
     Dosage: 1000 U/M2
     Route: 065
     Dates: start: 201303
  10. DEXAMETHASONE (UNKNOWN) [Suspect]
     Active Substance: DEXAMETHASONE
     Dosage: UNK
     Route: 065
  11. VINCRISTINE (UNKNOWN) [Suspect]
     Active Substance: VINCRISTINE
     Indication: ACUTE LYMPHOCYTIC LEUKAEMIA
     Dosage: UNK
     Route: 065
     Dates: start: 201301
  12. VINCRISTINE (UNKNOWN) [Suspect]
     Active Substance: VINCRISTINE
     Dosage: 1.5 MG/M2, CYCLICAL
     Route: 065
     Dates: start: 201303

REACTIONS (6)
  - Hypertriglyceridaemia [Recovered/Resolved]
  - Ascites [Unknown]
  - Cushing^s syndrome [Unknown]
  - Blood cholesterol increased [Unknown]
  - Pseudohyponatraemia [Unknown]
  - H1N1 influenza [Unknown]

NARRATIVE: CASE EVENT DATE: 201302
